FAERS Safety Report 8074155-4 (Version None)
Quarter: 2012Q1

REPORT INFORMATION
  Report Type: 
  Country: None (occurrence: None)
  Receive Date: 20120126
  Receipt Date: 20120119
  Transmission Date: 20120608
  Serious: No
  Sender: FDA-Public Use
  Company Number: US-B.I. PHARMACEUTICALS,INC./RIDGEFIELD-2011-BP-28868BP

PATIENT
  Sex: Female
  Weight: 73.93 kg

DRUGS (10)
  1. METOPROLOL TARTRATE [Concomitant]
     Indication: HYPERTENSION
     Dosage: 50 MG
     Route: 048
     Dates: start: 20070101
  2. LOSARTAN POTASSIUM AND HYDROCHLOROTHIAZIDE [Concomitant]
  3. MOMETASONE FUROATE [Concomitant]
     Indication: EAR DISORDER
     Route: 061
  4. AGGRENOX [Suspect]
     Route: 048
     Dates: start: 20111213, end: 20111222
  5. NORVASC [Concomitant]
     Indication: HYPERTENSION
     Dosage: 5 MG
     Route: 048
     Dates: start: 20111029
  6. CRESTOR [Concomitant]
     Dosage: 20 MG
     Route: 048
     Dates: start: 20090401
  7. AGGRENOX [Suspect]
     Indication: CEREBROVASCULAR ACCIDENT PROPHYLAXIS
     Route: 048
     Dates: start: 20111206, end: 20111213
  8. SYNTHROID [Concomitant]
     Indication: HYPOTHYROIDISM
     Dosage: 50 MCG
     Route: 048
     Dates: start: 20101001
  9. AGGRENOX [Suspect]
     Route: 048
     Dates: start: 20111224
  10. TOPRAL [Concomitant]

REACTIONS (8)
  - EAR PAIN [None]
  - PAIN IN JAW [None]
  - ARTHRALGIA [None]
  - HEADACHE [None]
  - NAUSEA [None]
  - NASAL CONGESTION [None]
  - MYALGIA [None]
  - INCORRECT DOSE ADMINISTERED [None]
